FAERS Safety Report 7884396-4 (Version None)
Quarter: 2011Q4

REPORT INFORMATION
  Report Type: 
  Country: None (occurrence: None)
  Receive Date: 20111102
  Receipt Date: 20111031
  Transmission Date: 20120403
  Serious: Yes (Other)
  Sender: FDA-Public Use
  Company Number: SE-ROCHE-1008205

PATIENT
  Age: 63 Year
  Sex: Female

DRUGS (2)
  1. MABTHERA [Suspect]
     Indication: RHEUMATOID ARTHRITIS
     Dates: start: 20100301
  2. MABTHERA [Suspect]
     Dates: start: 20101201

REACTIONS (1)
  - HEADACHE [None]
